FAERS Safety Report 9008041 (Version 2)
Quarter: 2013Q1

REPORT INFORMATION
  Report Type: Spontaneous
  Country: US (occurrence: US)
  Receive Date: 20130111
  Receipt Date: 20130129
  Transmission Date: 20140127
  Serious: No
  Sender: FDA-Public Use
  Company Number: US-PFIZER INC-2013007763

PATIENT
  Age: 42 Year
  Sex: Female
  Weight: 77 kg

DRUGS (10)
  1. PREMARIN [Suspect]
     Indication: POSTOPERATIVE CARE
     Dosage: 1.25 MG, 1X/DAY
     Route: 048
     Dates: start: 198807
  2. ALLEGRA-D [Concomitant]
     Indication: HYPERSENSITIVITY
     Dosage: UNK
  3. ALPRAZOLAM [Concomitant]
     Dosage: 0.25 MG, UNK
  4. FUROSEMIDE [Concomitant]
     Dosage: 20 MG, 2X/DAY
  5. LEVOTHYROXINE [Concomitant]
     Indication: HYPOTHYROIDISM
     Dosage: 50 UG, UNK
  6. LISINOPRIL W/HYDROCHLOROTHIAZIDE [Concomitant]
     Indication: HYPERTENSION
     Dosage: UNK
  7. MECLIZINE [Concomitant]
     Indication: VERTIGO
     Dosage: UNK
  8. POTASSIUM CHLORIDE [Concomitant]
     Dosage: UNK
  9. PRILOSEC [Concomitant]
     Dosage: UNK, 1X/DAY
  10. VENTOLIN [Concomitant]
     Indication: ASTHMA
     Dosage: UNK

REACTIONS (2)
  - Arthritis [Unknown]
  - Body height decreased [Unknown]
